FAERS Safety Report 5489157-1 (Version None)
Quarter: 2007Q3

REPORT INFORMATION
  Report Type: 
  Country: None (occurrence: None)
  Receive Date: 20070925
  Receipt Date: 20070625
  Transmission Date: 20080115
  Serious: No
  Sender: FDA-Public Use
  Company Number: 2007US001225

PATIENT
  Age: 69 Year
  Sex: Male

DRUGS (4)
  1. VESICARE [Suspect]
     Indication: BLADDER DISORDER
     Dosage: 5 MG
     Dates: start: 20070504, end: 20070518
  2. ANTIHYPERTENSIVES [Concomitant]
  3. VITAMINS [Concomitant]
  4. ACETYLSALICYLIC ACID SRT [Concomitant]

REACTIONS (1)
  - CONSTIPATION [None]
